FAERS Safety Report 16532360 (Version 3)
Quarter: 2020Q1

REPORT INFORMATION
  Report Type: Report from Study
  Country: DE (occurrence: DE)
  Receive Date: 20190704
  Receipt Date: 20200227
  Transmission Date: 20200409
  Serious: Yes (Hospitalization, Other)
  Sender: FDA-Public Use
  Company Number: DE-PFIZER INC-2019284201

PATIENT
  Age: 77 Year
  Sex: Female

DRUGS (5)
  1. TORASEMID [Concomitant]
     Active Substance: TORSEMIDE
  2. METHOTREXATE SODIUM. [Suspect]
     Active Substance: METHOTREXATE SODIUM
     Dosage: 10 MG, UNK
  3. METHOTREXATE SODIUM. [Suspect]
     Active Substance: METHOTREXATE SODIUM
     Dosage: 15 MG, WEEKLY
  4. HUMIRA [Suspect]
     Active Substance: ADALIMUMAB
     Indication: RHEUMATOID ARTHRITIS
     Dosage: 40 MG, EVERY 2 WEEKS
     Route: 058
     Dates: start: 200905, end: 20190418
  5. LODOTRA [Concomitant]
     Active Substance: PREDNISONE
     Dosage: 2 MG, UNK

REACTIONS (5)
  - Genital haemorrhage [Unknown]
  - Urinary tract infection [Unknown]
  - Endometrial adenocarcinoma [Not Recovered/Not Resolved]
  - Blood pressure increased [Unknown]
  - Hypomagnesaemia [Unknown]

NARRATIVE: CASE EVENT DATE: 201904
